FAERS Safety Report 5324220-7 (Version None)
Quarter: 2007Q2

REPORT INFORMATION
  Report Type: 
  Country: None (occurrence: None)
  Receive Date: 20070507
  Receipt Date: 20070420
  Transmission Date: 20071010
  Serious: Yes (Death)
  Sender: FDA-Public Use
  Company Number: 2007000713

PATIENT
  Age: 63 Year
  Sex: Male

DRUGS (1)
  1. TARCEVA [Suspect]
     Dosage: (QD), ORAL
     Route: 048

REACTIONS (1)
  - DEATH [None]
